FAERS Safety Report 4290200-6 (Version None)
Quarter: 2004Q1

REPORT INFORMATION
  Report Type: 
  Country: None (occurrence: None)
  Receive Date: 20040209
  Receipt Date: 20040129
  Transmission Date: 20041129
  Serious: Yes (Other)
  Sender: FDA-Public Use
  Company Number: 2004006513

PATIENT
  Sex: Male

DRUGS (2)
  1. ZITHROMAX [Suspect]
     Indication: ILL-DEFINED DISORDER
  2. INFLUENZA VACCINE (INFLUENZA VACCINE) [Concomitant]

REACTIONS (2)
  - INFLUENZA IMMUNISATION [None]
  - THROAT TIGHTNESS [None]
